FAERS Safety Report 10965585 (Version 1)
Quarter: 2015Q1

REPORT INFORMATION
  Report Type: Spontaneous
  Country: US (occurrence: US)
  Receive Date: 20150330
  Receipt Date: 20150330
  Transmission Date: 20150721
  Serious: No
  Sender: FDA-Public Use
  Company Number: US-B.I. PHARMACEUTICALS,INC./RIDGEFIELD-2015-BI-15044BP

PATIENT
  Age: 78 Year
  Sex: Female
  Weight: 73 kg

DRUGS (9)
  1. AMLODIPINE [Concomitant]
     Active Substance: AMLODIPINE BESYLATE
     Indication: HYPERTENSION
     Dosage: 5 MG
     Route: 065
  2. ESTRADIOL. [Concomitant]
     Active Substance: ESTRADIOL
     Indication: OESTROGEN THERAPY
     Dosage: 1 MG
     Route: 065
  3. PROPANOLOL [Concomitant]
     Active Substance: PROPRANOLOL HYDROCHLORIDE
     Indication: ARTHRALGIA
  4. BUSPIRONE [Concomitant]
     Active Substance: BUSPIRONE HYDROCHLORIDE
     Indication: TREMOR
     Dosage: 30 MG
     Route: 065
  5. AZELASTINE HYDROCHLORIDE. [Concomitant]
     Active Substance: AZELASTINE HYDROCHLORIDE
     Indication: SINUS DISORDER
     Route: 065
  6. MELOXICAM. [Suspect]
     Active Substance: MELOXICAM
     Indication: PAIN
     Dosage: 15 MG
     Route: 065
  7. PROPANOLOL [Concomitant]
     Active Substance: PROPRANOLOL HYDROCHLORIDE
     Indication: ARTHRITIS
     Dosage: 60 MG
     Route: 065
  8. LOSARTAN [Concomitant]
     Active Substance: LOSARTAN
     Indication: HYPERTENSION
     Dosage: 100 MG
     Route: 065
  9. LYRICA [Concomitant]
     Active Substance: PREGABALIN
     Indication: NEUROPATHY PERIPHERAL
     Dosage: 200 MG
     Route: 048
     Dates: start: 201501

REACTIONS (2)
  - Oropharyngeal pain [Not Recovered/Not Resolved]
  - Tonsillitis [Not Recovered/Not Resolved]

NARRATIVE: CASE EVENT DATE: 20150307
